FAERS Safety Report 8820827 (Version 1)
Quarter: 2012Q4

REPORT INFORMATION
  Report Type: 
  Country: JP (occurrence: JP)
  Receive Date: 20121002
  Receipt Date: 20121002
  Transmission Date: 20130627
  Serious: Yes (Death, Hospitalization, Other)
  Sender: FDA-Public Use
  Company Number: JP-ELI_LILLY_AND_COMPANY-JP201209007620

PATIENT
  Age: 72 Year
  Sex: Female

DRUGS (2)
  1. GEMZAR [Suspect]
     Indication: PANCREATIC CARCINOMA STAGE IV
     Dosage: UNK
     Route: 013
     Dates: start: 201002
  2. 5-FU [Concomitant]
     Indication: PANCREATIC CARCINOMA STAGE IV
     Dosage: UNK
     Route: 013
     Dates: start: 201002

REACTIONS (5)
  - Disseminated intravascular coagulation [Fatal]
  - Sepsis [Fatal]
  - Pneumonia [Not Recovered/Not Resolved]
  - Hepatic function abnormal [Unknown]
  - Incorrect route of drug administration [Unknown]
